FAERS Safety Report 8935713 (Version 2)
Quarter: 2013Q1

REPORT INFORMATION
  Report Type: Spontaneous
  Country: BE (occurrence: BE)
  Receive Date: 20121130
  Receipt Date: 20130130
  Transmission Date: 20140127
  Serious: Yes (Other)
  Sender: FDA-Public Use
  Company Number: BE-BRISTOL-MYERS SQUIBB COMPANY-17152489

PATIENT
  Age: 75 Year
  Sex: Female

DRUGS (4)
  1. CAPOTEN [Suspect]
     Indication: MYOCARDIAL INFARCTION
     Dates: start: 2002
  2. GLUCOPHAGE [Suspect]
     Indication: DIABETES MELLITUS
  3. TENORMIN [Suspect]
  4. CARDIOASPIRIN [Suspect]

REACTIONS (2)
  - Coronary artery disease [Unknown]
  - Wrong technique in drug usage process [Unknown]
